FAERS Safety Report 22103225 (Version 4)
Quarter: 2025Q2

REPORT INFORMATION
  Report Type: Spontaneous
  Country: CA (occurrence: CA)
  Receive Date: 20230316
  Receipt Date: 20250421
  Transmission Date: 20250716
  Serious: Yes (Other)
  Sender: PFIZER
  Company Number: CA-PFIZER INC-202200425954

PATIENT
  Age: 51 Year
  Sex: Female

DRUGS (23)
  1. RUXIENCE [Suspect]
     Active Substance: RITUXIMAB-PVVR
     Indication: Rheumatoid arthritis
     Route: 042
     Dates: start: 20210719, end: 20210803
  2. RUXIENCE [Suspect]
     Active Substance: RITUXIMAB-PVVR
     Route: 042
     Dates: start: 20220211, end: 20220224
  3. RUXIENCE [Suspect]
     Active Substance: RITUXIMAB-PVVR
     Route: 042
     Dates: start: 20220224
  4. RUXIENCE [Suspect]
     Active Substance: RITUXIMAB-PVVR
     Route: 042
     Dates: start: 20220802, end: 20220816
  5. RUXIENCE [Suspect]
     Active Substance: RITUXIMAB-PVVR
     Route: 042
     Dates: start: 20230401, end: 20230415
  6. RUXIENCE [Suspect]
     Active Substance: RITUXIMAB-PVVR
     Route: 042
     Dates: start: 20231017, end: 20231031
  7. RUXIENCE [Suspect]
     Active Substance: RITUXIMAB-PVVR
     Route: 042
     Dates: start: 20240430, end: 20240515
  8. RUXIENCE [Suspect]
     Active Substance: RITUXIMAB-PVVR
     Route: 042
     Dates: start: 20241121, end: 20241206
  9. RUXIENCE [Suspect]
     Active Substance: RITUXIMAB-PVVR
     Route: 042
     Dates: start: 20241206
  10. ATORVASTATIN [Concomitant]
     Active Substance: ATORVASTATIN
  11. ATORVASTATIN [Concomitant]
     Active Substance: ATORVASTATIN
  12. METHOTREXATE [Concomitant]
     Active Substance: METHOTREXATE
  13. METHOTREXATE [Concomitant]
     Active Substance: METHOTREXATE
  14. METOPROLOL [Concomitant]
     Active Substance: METOPROLOL
  15. METOPROLOL [Concomitant]
     Active Substance: METOPROLOL
  16. PLAQUENIL [Concomitant]
     Active Substance: HYDROXYCHLOROQUINE SULFATE
  17. PLAQUENIL [Concomitant]
     Active Substance: HYDROXYCHLOROQUINE SULFATE
  18. PREDNISONE [Concomitant]
     Active Substance: PREDNISONE
  19. PREDNISONE [Concomitant]
     Active Substance: PREDNISONE
  20. RAMIPRIL [Concomitant]
     Active Substance: RAMIPRIL
  21. RAMIPRIL [Concomitant]
     Active Substance: RAMIPRIL
  22. SULFASALAZINE [Concomitant]
     Active Substance: SULFASALAZINE
  23. SULFASALAZINE [Concomitant]
     Active Substance: SULFASALAZINE

REACTIONS (3)
  - Diabetes mellitus [Not Recovered/Not Resolved]
  - Off label use [Unknown]
  - Condition aggravated [Not Recovered/Not Resolved]
